FAERS Safety Report 4493361-9 (Version None)
Quarter: 2004Q4

REPORT INFORMATION
  Report Type: 
  Country: None (occurrence: None)
  Receive Date: 20041104
  Receipt Date: 20041029
  Transmission Date: 20050328
  Serious: Yes (Hospitalization)
  Sender: FDA-Public Use
  Company Number: JP-MERCK-0411USA00296

PATIENT
  Age: 37 Year
  Sex: Female

DRUGS (4)
  1. MAXALT RPD [Suspect]
     Indication: MIGRAINE
     Route: 048
     Dates: start: 20040301, end: 20041025
  2. VOLTAREN [Suspect]
     Indication: MIGRAINE
     Route: 048
     Dates: start: 20040301, end: 20041025
  3. LANSOPRAZOLE [Suspect]
     Indication: GASTRIC ULCER
     Route: 048
     Dates: start: 20040301, end: 20041025
  4. [THERAPY UNSPECIFIED] [Concomitant]
     Route: 065

REACTIONS (3)
  - ANXIETY [None]
  - THERAPY NON-RESPONDER [None]
  - URTICARIA CHRONIC [None]
